FAERS Safety Report 4848313-3 (Version None)
Quarter: 2005Q4

REPORT INFORMATION
  Report Type: 
  Country: None (occurrence: None)
  Receive Date: 20051207
  Receipt Date: 20051207
  Transmission Date: 20060501
  Serious: Yes (Life-Threatening, Hospitalization)
  Sender: FDA-Public Use
  Company Number: None

PATIENT
  Age: 51 Year
  Sex: Male

DRUGS (4)
  1. PLAVIX [Suspect]
     Dosage: 75 MG PO DAILY
     Route: 048
  2. SINGULAIR [Concomitant]
  3. VYTORAN [Concomitant]
  4. TOPROL-XL [Concomitant]

REACTIONS (1)
  - MYOCARDIAL INFARCTION [None]
